FAERS Safety Report 19994922 (Version 1)
Quarter: 2021Q4

REPORT INFORMATION
  Report Type: Spontaneous
  Country: US (occurrence: US)
  Receive Date: 20211026
  Receipt Date: 20211026
  Transmission Date: 20220303
  Serious: No
  Sender: FDA-Public Use
  Company Number: US-ACCORD-226015

PATIENT
  Age: 60 Year
  Sex: Male
  Weight: 73.94 kg

DRUGS (1)
  1. TACROLIMUS [Suspect]
     Active Substance: TACROLIMUS
     Indication: Product used for unknown indication
     Dosage: STRENGTH-1MG, .5MG

REACTIONS (1)
  - Arthralgia [Unknown]
